FAERS Safety Report 18855252 (Version 1)
Quarter: 2021Q1

REPORT INFORMATION
  Report Type: Spontaneous
  Country: US (occurrence: US)
  Receive Date: 20210206
  Receipt Date: 20210206
  Transmission Date: 20210420
  Serious: No
  Sender: FDA-Public Use
  Company Number: US-JNJFOC-20210147555

PATIENT
  Age: 61 Year
  Sex: Male
  Weight: 99.88 kg

DRUGS (1)
  1. MENS ROGAINE EXTRA STRENGTH [Suspect]
     Active Substance: MINOXIDIL
     Indication: ALOPECIA
     Dosage: LAST ADMINISTRATION ON: 23?JAN?2021
     Route: 061
     Dates: start: 2020

REACTIONS (3)
  - Application site exfoliation [Not Recovered/Not Resolved]
  - Application site irritation [Recovered/Resolved]
  - Application site pruritus [Not Recovered/Not Resolved]

NARRATIVE: CASE EVENT DATE: 202101
